FAERS Safety Report 22330200 (Version 2)
Quarter: 2023Q2

REPORT INFORMATION
  Report Type: Spontaneous
  Country: US (occurrence: US)
  Receive Date: 20230517
  Receipt Date: 20230529
  Transmission Date: 20230722
  Serious: No
  Sender: FDA-Public Use
  Company Number: US-ELI_LILLY_AND_COMPANY-US202305009018

PATIENT
  Age: 28 Year
  Sex: Female

DRUGS (4)
  1. MOUNJARO [Suspect]
     Active Substance: TIRZEPATIDE
     Indication: Weight decreased
     Dosage: 2.5 MG, UNKNOWN
     Route: 058
     Dates: start: 20230421
  2. MOUNJARO [Suspect]
     Active Substance: TIRZEPATIDE
     Indication: Weight decreased
     Dosage: 2.5 MG, UNKNOWN
     Route: 058
     Dates: start: 20230421
  3. MOUNJARO [Suspect]
     Active Substance: TIRZEPATIDE
     Indication: Hepatic steatosis
  4. MOUNJARO [Suspect]
     Active Substance: TIRZEPATIDE
     Indication: Hepatic steatosis

REACTIONS (4)
  - Incorrect dose administered [Unknown]
  - Off label use [Unknown]
  - Injection site pain [Unknown]
  - Injection site haemorrhage [Unknown]

NARRATIVE: CASE EVENT DATE: 20230421
